FAERS Safety Report 19622924 (Version 1)
Quarter: 2021Q3

REPORT INFORMATION
  Report Type: Spontaneous
  Country: US (occurrence: US)
  Receive Date: 20210728
  Receipt Date: 20210728
  Transmission Date: 20211014
  Serious: Yes (Other)
  Sender: FDA-Public Use
  Company Number: US-ELI_LILLY_AND_COMPANY-US202107009149

PATIENT
  Age: 67 Year
  Sex: Female

DRUGS (2)
  1. HUMALOG [Suspect]
     Active Substance: INSULIN LISPRO
     Indication: PRODUCT USED FOR UNKNOWN INDICATION
     Dosage: UNK UNK, UNKNOWN
     Route: 058
  2. HUMALOG [Suspect]
     Active Substance: INSULIN LISPRO
     Dosage: UNK UNK, UNKNOWN
     Route: 058

REACTIONS (7)
  - Diabetes mellitus inadequate control [Unknown]
  - Dizziness [Recovered/Resolved]
  - Visual impairment [Unknown]
  - Blindness [Unknown]
  - Retinal detachment [Recovering/Resolving]
  - Retinal detachment [Unknown]
  - Retinal detachment [Unknown]

NARRATIVE: CASE EVENT DATE: 202008
